FAERS Safety Report 6301752-6 (Version None)
Quarter: 2009Q3

REPORT INFORMATION
  Report Type: 
  Country: None (occurrence: None)
  Receive Date: 20090807
  Receipt Date: 20090804
  Transmission Date: 20100115
  Serious: Yes (Hospitalization)
  Sender: FDA-Public Use
  Company Number: US-RB-016796-09

PATIENT
  Sex: Male

DRUGS (1)
  1. SUBOXONE [Suspect]
     Indication: DRUG USE FOR UNKNOWN INDICATION
     Dosage: UNKNOWN DOSE

REACTIONS (21)
  - AFFECT LABILITY [None]
  - ANXIETY [None]
  - BLINDNESS [None]
  - BLOOD PRESSURE INCREASED [None]
  - CYST [None]
  - DIZZINESS [None]
  - EUPHORIC MOOD [None]
  - FEELING JITTERY [None]
  - HEART RATE INCREASED [None]
  - LOGORRHOEA [None]
  - MENTAL IMPAIRMENT [None]
  - MIGRAINE [None]
  - NASAL CYST [None]
  - OXYGEN SATURATION DECREASED [None]
  - PYREXIA [None]
  - SLEEP DISORDER [None]
  - SYNCOPE [None]
  - VOMITING [None]
  - WEIGHT DECREASED [None]
  - WEIGHT GAIN POOR [None]
  - WITHDRAWAL SYNDROME [None]
